FAERS Safety Report 7319991-4 (Version None)
Quarter: 2011Q1

REPORT INFORMATION
  Report Type: 
  Country: None (occurrence: None)
  Receive Date: 20110228
  Receipt Date: 20110215
  Transmission Date: 20110831
  Serious: Yes (Hospitalization, Other)
  Sender: FDA-Public Use
  Company Number: US-BAYER-201020843NA

PATIENT
  Sex: Female
  Weight: 62 kg

DRUGS (4)
  1. KEFLEX [Concomitant]
     Route: 048
     Dates: start: 20060109, end: 20060119
  2. YASMIN [Suspect]
     Indication: CONTRACEPTION
     Route: 048
     Dates: start: 20041001, end: 20060119
  3. IBUPROFEN [Concomitant]
     Route: 048
     Dates: start: 20041025
  4. YAZ [Suspect]
     Indication: CONTRACEPTION
     Route: 048
     Dates: start: 20041001, end: 20060119

REACTIONS (12)
  - PAIN IN EXTREMITY [None]
  - CHEST PAIN [None]
  - CHEST DISCOMFORT [None]
  - ANXIETY [None]
  - DEPRESSION [None]
  - FATIGUE [None]
  - PARAESTHESIA [None]
  - HYPOAESTHESIA [None]
  - OEDEMA PERIPHERAL [None]
  - DEEP VEIN THROMBOSIS [None]
  - DISCOMFORT [None]
  - DYSPNOEA [None]
